FAERS Safety Report 18422518 (Version 1)
Quarter: 2020Q4

REPORT INFORMATION
  Report Type: Spontaneous
  Country: US (occurrence: US)
  Receive Date: 20201023
  Receipt Date: 20201023
  Transmission Date: 20210114
  Serious: No
  Sender: FDA-Public Use
  Company Number: US-MILLICENT HOLDINGS LTD.-MILL20201009

PATIENT
  Age: 66 Year

DRUGS (5)
  1. FEMRING [Suspect]
     Active Substance: ESTRADIOL ACETATE
     Dosage: 0.05 MG/DAY
     Route: 067
     Dates: start: 2017, end: 202004
  2. FEMRING [Suspect]
     Active Substance: ESTRADIOL ACETATE
     Indication: MENOPAUSAL SYMPTOMS
     Dosage: 0.1 MG/DAY
     Route: 067
     Dates: start: 202005
  3. VITAMINS NOS [Concomitant]
     Active Substance: VITAMINS
  4. ZINC. [Concomitant]
     Active Substance: ZINC
  5. BUTALBITAL/APAP/CAFFEINE [Concomitant]
     Active Substance: ACETAMINOPHEN\BUTABARBITAL\CAFFEINE
     Indication: MIGRAINE

REACTIONS (6)
  - Vulvovaginal erythema [Not Recovered/Not Resolved]
  - Vulvovaginal swelling [Not Recovered/Not Resolved]
  - Therapeutic product effect decreased [Unknown]
  - Breast pain [Not Recovered/Not Resolved]
  - Migraine [Unknown]
  - Crying [Unknown]
